FAERS Safety Report 13509136 (Version 1)
Quarter: 2017Q2

REPORT INFORMATION
  Report Type: Spontaneous
  Country: US (occurrence: US)
  Receive Date: 20170503
  Receipt Date: 20170503
  Transmission Date: 20170830
  Serious: No
  Sender: FDA-Public Use
  Company Number: US-009507513-1704USA013563

PATIENT
  Sex: Female

DRUGS (3)
  1. FOLLITROPIN BETA [Suspect]
     Active Substance: FOLLITROPIN
     Indication: PRODUCT USED FOR UNKNOWN INDICATION
     Route: 058
  2. FOLLISTIM [Suspect]
     Active Substance: FOLLITROPIN
     Dosage: 300 IU, UNK
     Route: 058
  3. FOLLISTIM [Suspect]
     Active Substance: FOLLITROPIN
     Route: 058

REACTIONS (4)
  - Device malfunction [Unknown]
  - Needle issue [Unknown]
  - Drug dose omission [Unknown]
  - Incorrect dose administered by device [Unknown]

NARRATIVE: CASE EVENT DATE: 2017
